FAERS Safety Report 5017097-0 (Version None)
Quarter: 2006Q2

REPORT INFORMATION
  Report Type: 
  Country: None (occurrence: None)
  Receive Date: 20060525
  Receipt Date: 20060517
  Transmission Date: 20061013
  Serious: Yes (Hospitalization)
  Sender: FDA-Public Use
  Company Number: US017555

PATIENT
  Age: 69 Year
  Sex: Female
  Weight: 81.6475 kg

DRUGS (5)
  1. ACTIQ [Suspect]
     Indication: FIBROMYALGIA
     Dosage: 800 UG Q4HR BUCCAL
     Route: 002
     Dates: start: 20051101, end: 20060401
  2. DURAGESIC-100 [Suspect]
     Indication: FIBROMYALGIA
     Dosage: 250 UG Q72HR TRANSDERMAL
     Route: 062
     Dates: start: 20010101
  3. PROVIGIL [Concomitant]
  4. CYTOMEL [Concomitant]
  5. XANAX [Concomitant]

REACTIONS (1)
  - PNEUMONIA [None]
